FAERS Safety Report 9262110 (Version 2)
Quarter: 2013Q2

REPORT INFORMATION
  Report Type: Report from Study
  Country: DE (occurrence: DE)
  Receive Date: 20130430
  Receipt Date: 20130603
  Transmission Date: 20140414
  Serious: Yes (Other)
  Sender: FDA-Public Use
  Company Number: DE-ROCHE-1219541

PATIENT
  Sex: Male

DRUGS (5)
  1. RANIBIZUMAB [Suspect]
     Indication: AGE-RELATED MACULAR DEGENERATION
     Route: 050
     Dates: start: 20120913
  2. RANIBIZUMAB [Suspect]
     Route: 050
     Dates: start: 20121022
  3. RANIBIZUMAB [Suspect]
     Route: 050
     Dates: start: 20121126
  4. RANIBIZUMAB [Suspect]
     Route: 050
     Dates: start: 20130311, end: 20130417
  5. COMBIGAN [Concomitant]
     Indication: OPEN ANGLE GLAUCOMA
     Route: 065
     Dates: start: 20061114

REACTIONS (1)
  - Visual acuity reduced [Not Recovered/Not Resolved]
